FAERS Safety Report 4814711-7 (Version None)
Quarter: 2005Q4

REPORT INFORMATION
  Report Type: 
  Country: None (occurrence: None)
  Receive Date: 20051028
  Receipt Date: 20050920
  Transmission Date: 20060501
  Serious: Yes (Death, Hospitalization)
  Sender: FDA-Public Use
  Company Number: HQWYE566421SEP05

PATIENT
  Sex: Male

DRUGS (9)
  1. ENBREL [Suspect]
     Indication: RHEUMATOID ARTHRITIS
     Route: 058
     Dates: start: 20050816, end: 20050916
  2. ACTARIT [Concomitant]
     Indication: RHEUMATOID ARTHRITIS
     Route: 048
     Dates: start: 20050629, end: 20050919
  3. PREDONINE [Concomitant]
     Dates: start: 20050501, end: 20050701
  4. PREDONINE [Concomitant]
     Dates: start: 20050701, end: 20050815
  5. PREDONINE [Concomitant]
     Dates: start: 20050816, end: 20050919
  6. LANSOPRAZOLE [Concomitant]
     Dates: start: 20050614, end: 20050919
  7. GLICLAZIDE [Concomitant]
     Dates: start: 20050614, end: 20050919
  8. VOLTAREN [Concomitant]
     Dates: start: 20050629, end: 20050919
  9. ISONIAZID [Concomitant]
     Dates: start: 20050816, end: 20050919

REACTIONS (5)
  - CONDITION AGGRAVATED [None]
  - DIFFUSE ALVEOLAR DAMAGE [None]
  - DRUG INEFFECTIVE [None]
  - INTERSTITIAL LUNG DISEASE [None]
  - PNEUMOCYSTIS JIROVECI PNEUMONIA [None]
